FAERS Safety Report 23742461 (Version 1)
Quarter: 2024Q2

REPORT INFORMATION
  Report Type: Spontaneous
  Country: ES (occurrence: ES)
  Receive Date: 20240415
  Receipt Date: 20240415
  Transmission Date: 20240716
  Serious: Yes (Other)
  Sender: FDA-Public Use
  Company Number: ES-PFIZER INC-202400084987

PATIENT
  Sex: Male

DRUGS (2)
  1. BEVACIZUMAB [Suspect]
     Active Substance: BEVACIZUMAB
     Indication: Hereditary haemorrhagic telangiectasia
     Dosage: 5 MG/KG (INDUCTION)
     Route: 042
     Dates: start: 202202
  2. BEVACIZUMAB [Suspect]
     Active Substance: BEVACIZUMAB
     Dosage: 5 MG/KG, CYCLIC, EVERY 2 WEEKS
     Route: 042

REACTIONS (4)
  - Hypothyroidism [Unknown]
  - Hypertension [Unknown]
  - Off label use [Unknown]
  - Drug effective for unapproved indication [Unknown]
